FAERS Safety Report 25537810 (Version 2)
Quarter: 2025Q3

REPORT INFORMATION
  Report Type: Spontaneous
  Country: US (occurrence: US)
  Receive Date: 20250710
  Receipt Date: 20250911
  Transmission Date: 20251021
  Serious: No
  Sender: ROCHE
  Company Number: US-ROCHE-10000330520

PATIENT
  Sex: Female

DRUGS (1)
  1. XOLAIR [Suspect]
     Active Substance: OMALIZUMAB
     Indication: Idiopathic urticaria
     Dosage: STRENGTH:300MG/2ML
     Route: 058
     Dates: start: 201607

REACTIONS (4)
  - Urticaria [Unknown]
  - Pruritus [Unknown]
  - Swelling [Unknown]
  - Food allergy [Unknown]
